FAERS Safety Report 24090768 (Version 4)
Quarter: 2024Q3

REPORT INFORMATION
  Report Type: Spontaneous
  Country: US (occurrence: US)
  Receive Date: 20240715
  Receipt Date: 20240930
  Transmission Date: 20241017
  Serious: Yes (Hospitalization, Other)
  Sender: BRISTOL MYERS SQUIBB
  Company Number: US-BRISTOL-MYERS SQUIBB COMPANY-2024-111616

PATIENT
  Age: 79 Year
  Sex: Female
  Weight: 70.31 kg

DRUGS (1)
  1. REVLIMID [Suspect]
     Active Substance: LENALIDOMIDE
     Indication: Plasma cell myeloma
     Dosage: FREQUENCY: 1 CAPSULE DAILY FOR 21 DAYS, THEN 7 DAYS OFF/3 WKS ON,1 WK OFF/DAILY FOR 21 DAYS AND 7 DA
     Route: 048
     Dates: start: 20240601

REACTIONS (10)
  - Pneumonia [Recovered/Resolved]
  - Blood disorder [Unknown]
  - Anaemia [Recovered/Resolved]
  - Skin exfoliation [Not Recovered/Not Resolved]
  - Skin fissures [Not Recovered/Not Resolved]
  - Diarrhoea [Unknown]
  - Constipation [Unknown]
  - Weight decreased [Unknown]
  - Nasopharyngitis [Unknown]
  - Haemoglobin decreased [Recovered/Resolved]

NARRATIVE: CASE EVENT DATE: 20240801
